FAERS Safety Report 8122510-6 (Version None)
Quarter: 2012Q1

REPORT INFORMATION
  Report Type: 
  Country: None (occurrence: None)
  Receive Date: 20120207
  Receipt Date: 20120207
  Transmission Date: 20120608
  Serious: Yes (Hospitalization)
  Sender: FDA-Public Use
  Company Number: None

PATIENT
  Sex: Female
  Weight: 10 kg

DRUGS (1)
  1. DIPRYRONE [Suspect]
     Dosage: 2.5MG/KG/DAY DAILY SC
     Route: 058

REACTIONS (4)
  - RASH [None]
  - CONDITION AGGRAVATED [None]
  - NO THERAPEUTIC RESPONSE [None]
  - RHINORRHOEA [None]
